FAERS Safety Report 8820456 (Version 1)
Quarter: 2012Q4

REPORT INFORMATION
  Report Type: 
  Country: US (occurrence: US)
  Receive Date: 20121002
  Receipt Date: 20121002
  Transmission Date: 20130627
  Serious: Yes (Hospitalization)
  Sender: FDA-Public Use
  Company Number: US-009507513-1209USA011856

PATIENT
  Sex: Male

DRUGS (1)
  1. PEGINTRON [Suspect]
     Indication: HEPATITIS C
     Dosage: 150 Microgram, qw
     Route: 058
     Dates: start: 201205

REACTIONS (5)
  - Ammonia increased [Unknown]
  - No therapeutic response [Unknown]
  - Dehydration [Unknown]
  - Dizziness [Unknown]
  - Nausea [Unknown]
